FAERS Safety Report 6093781-5 (Version None)
Quarter: 2009Q1

REPORT INFORMATION
  Report Type: 
  Country: None (occurrence: None)
  Receive Date: 20090223
  Receipt Date: 20090223
  Transmission Date: 20090719
  Serious: Yes (Life-Threatening, Hospitalization)
  Sender: FDA-Public Use
  Company Number: None

PATIENT
  Age: 47 Year
  Sex: Male
  Weight: 90.4 kg

DRUGS (2)
  1. MILRINONE 0.2 MG/ML IN D5W 200 ML [Suspect]
     Indication: CARDIAC FAILURE
     Dosage: IV DRIP
     Route: 041
     Dates: start: 20090122, end: 20090220
  2. SALINE IV FLUID [Concomitant]

REACTIONS (4)
  - HYPOGLYCAEMIA [None]
  - PRODUCT QUALITY ISSUE [None]
  - UNRESPONSIVE TO STIMULI [None]
  - WRONG DRUG ADMINISTERED [None]
